FAERS Safety Report 21362400 (Version 2)
Quarter: 2022Q4

REPORT INFORMATION
  Report Type: Spontaneous
  Country: US (occurrence: US)
  Receive Date: 20220922
  Receipt Date: 20221128
  Transmission Date: 20230113
  Serious: No
  Sender: FDA-Public Use
  Company Number: US-ORGANON-O2209USA000619

PATIENT
  Age: 26 Year
  Sex: Female

DRUGS (2)
  1. ASMANEX [Suspect]
     Active Substance: MOMETASONE FUROATE
     Indication: Asthma
     Dosage: 2 PUFFS NIGHTLY, 120 DOSES INHALER, DOSAGE FORM REPORTED AS AEROSOL
     Dates: start: 20220817, end: 20220905
  2. ASMANEX [Suspect]
     Active Substance: MOMETASONE FUROATE
     Indication: Asthma
     Dosage: 2 PUFFS EVERY NIGHT, REPORTED AS STARTED 2 OR 3 YEARS AGO, DOSAGE FORM REPORTED AS AEROSOL
     Dates: start: 2019

REACTIONS (6)
  - Poor quality device used [Unknown]
  - Product dose omission issue [Unknown]
  - Poor quality device used [Unknown]
  - Device malfunction [Unknown]
  - Device malfunction [Unknown]
  - No adverse event [Unknown]

NARRATIVE: CASE EVENT DATE: 20220817
